FAERS Safety Report 12540319 (Version 1)
Quarter: 2016Q3

REPORT INFORMATION
  Report Type: Spontaneous
  Country: US (occurrence: US)
  Receive Date: 20160708
  Receipt Date: 20160708
  Transmission Date: 20161109
  Serious: Yes (Hospitalization)
  Sender: FDA-Public Use
  Company Number: US-DSJP-DSU-2015-127157

PATIENT
  Age: 71 Year
  Sex: Female
  Weight: 117.91 kg

DRUGS (2)
  1. XANAX [Concomitant]
     Active Substance: ALPRAZOLAM
     Indication: ANXIETY
     Dosage: 5 MG, TID
     Dates: start: 2014
  2. BENICAR HCT [Suspect]
     Active Substance: HYDROCHLOROTHIAZIDE\OLMESARTAN MEDOXOMIL
     Indication: HYPERTENSION
     Dosage: 40/25 MG, QD
     Route: 048
     Dates: start: 201111, end: 201405

REACTIONS (7)
  - Duodenitis [Unknown]
  - Malabsorption [Recovered/Resolved]
  - Haemorrhoids [Unknown]
  - Polyp [Unknown]
  - Diverticulitis [Unknown]
  - Constipation [Unknown]
  - Depression [Unknown]

NARRATIVE: CASE EVENT DATE: 2014
